FAERS Safety Report 15265686 (Version 1)
Quarter: 2018Q3

REPORT INFORMATION
  Report Type: Spontaneous
  Country: US (occurrence: US)
  Receive Date: 20180723
  Receipt Date: 20180723
  Transmission Date: 20181010
  Serious: No
  Sender: FDA-Public Use
  Company Number: None

PATIENT
  Age: 66 Year
  Sex: Female

DRUGS (2)
  1. MYCOPHENOLATE 250MG [Suspect]
     Active Substance: MYCOPHENOLIC ACID
     Indication: TRANSPLANT REJECTION
     Dosage: ?          OTHER FREQUENCY:2 Q AM 1 Q PM;?
     Route: 048
     Dates: start: 20061011
  2. SIROLIMUS 1MG [Suspect]
     Active Substance: SIROLIMUS
     Indication: TRANSPLANT REJECTION
     Route: 048
     Dates: start: 20061127

REACTIONS (1)
  - Renal abscess [None]

NARRATIVE: CASE EVENT DATE: 20180620
